FAERS Safety Report 12864826 (Version 1)
Quarter: 2016Q4

REPORT INFORMATION
  Report Type: Spontaneous
  Country: FR (occurrence: FR)
  Receive Date: 20161020
  Receipt Date: 20161020
  Transmission Date: 20170207
  Serious: Yes (Death, Life-Threatening, Hospitalization, Other)
  Sender: FDA-Public Use
  Company Number: FR-BRISTOL-MYERS SQUIBB COMPANY-BMS-2016-085975

PATIENT
  Age: 52 Year
  Sex: Male

DRUGS (5)
  1. EPIVIR [Suspect]
     Active Substance: LAMIVUDINE
     Indication: HIV INFECTION
     Dosage: 1 DF, QD
     Route: 048
     Dates: start: 20141202, end: 20160608
  2. TIVICAY [Suspect]
     Active Substance: DOLUTEGRAVIR SODIUM
     Indication: HIV INFECTION
     Dosage: 1 DF, QD
     Route: 048
     Dates: start: 20160427, end: 20160620
  3. UVEDOSE [Concomitant]
     Active Substance: CHOLECALCIFEROL
     Indication: PRODUCT USED FOR UNKNOWN INDICATION
     Route: 048
  4. KENACORT [Suspect]
     Active Substance: TRIAMCINOLONE
     Indication: HYPERSENSITIVITY
     Dosage: 1 DF, UNK
     Route: 030
     Dates: start: 20160511
  5. NOCTAMIDE [Concomitant]
     Active Substance: LORMETAZEPAM
     Indication: PRODUCT USED FOR UNKNOWN INDICATION
     Dosage: 1 DF, PRN
     Route: 048
     Dates: start: 2009

REACTIONS (10)
  - Pancreatic pseudocyst drainage [Unknown]
  - Shock haemorrhagic [Unknown]
  - Acute respiratory distress syndrome [Unknown]
  - Gastrointestinal haemorrhage [Unknown]
  - Pneumonia aspiration [Unknown]
  - Pancreatic pseudocyst [Unknown]
  - Pancreatitis necrotising [Fatal]
  - Multiple organ dysfunction syndrome [Fatal]
  - Portal vein thrombosis [Unknown]
  - Transfusion [Unknown]

NARRATIVE: CASE EVENT DATE: 20160608
